FAERS Safety Report 8495846 (Version 3)
Quarter: 2013Q3

REPORT INFORMATION
  Report Type: Spontaneous
  Country: US (occurrence: US)
  Receive Date: 20120405
  Receipt Date: 20130912
  Transmission Date: 20140515
  Serious: Yes (Hospitalization, Other)
  Sender: FDA-Public Use
  Company Number: US-ROCHE-783986

PATIENT
  Age: 35 Year
  Sex: Female
  Weight: 52.66 kg

DRUGS (4)
  1. ACCUTANE [Suspect]
     Indication: ACNE
     Route: 065
     Dates: start: 19980901, end: 1999
  2. XANAX [Concomitant]
     Indication: ANXIETY
  3. DESOWEN [Concomitant]
  4. ORTHO TRI-CYCLEN [Concomitant]

REACTIONS (13)
  - Inflammatory bowel disease [Unknown]
  - Anal fistula [Recovering/Resolving]
  - Pyoderma gangrenosum [Recovered/Resolved]
  - Colitis ulcerative [Unknown]
  - Stress [Unknown]
  - Large intestine polyp [Unknown]
  - Depression [Unknown]
  - Irritable bowel syndrome [Unknown]
  - Dry skin [Unknown]
  - Nasal dryness [Unknown]
  - Pruritus [Unknown]
  - Blepharitis [Unknown]
  - Muscle strain [Unknown]
